FAERS Safety Report 7643980-3 (Version None)
Quarter: 2011Q3

REPORT INFORMATION
  Report Type: 
  Country: None (occurrence: None)
  Receive Date: 20110729
  Receipt Date: 20101210
  Transmission Date: 20111222
  Serious: No
  Sender: FDA-Public Use
  Company Number: US-GLAXOSMITHKLINE-A0899330A

PATIENT
  Sex: Female

DRUGS (1)
  1. RANITIDINE [Suspect]

REACTIONS (1)
  - ORAL PAIN [None]
